FAERS Safety Report 15331786 (Version 1)
Quarter: 2018Q3

REPORT INFORMATION
  Report Type: Report from Study
  Country: PL (occurrence: PL)
  Receive Date: 20180829
  Receipt Date: 20180829
  Transmission Date: 20181010
  Serious: Yes (Death, Other)
  Sender: FDA-Public Use
  Company Number: PL-SA-2018SA131689

PATIENT
  Age: 24 Year
  Sex: Male

DRUGS (12)
  1. DOXORUBICIN [Suspect]
     Active Substance: DOXORUBICIN
     Dosage: UNK
  2. AZATHIOPRINE. [Suspect]
     Active Substance: AZATHIOPRINE
     Indication: CHRONIC LYMPHOCYTIC LEUKAEMIA
     Dosage: UNK
  3. VINCRISTINE SULFATE. [Suspect]
     Active Substance: VINCRISTINE SULFATE
     Indication: CHRONIC LYMPHOCYTIC LEUKAEMIA
     Dosage: UNK
  4. CYCLOPHOSPHAMIDE. [Suspect]
     Active Substance: CYCLOPHOSPHAMIDE
     Dosage: UNK
  5. CLADRIBINE. [Suspect]
     Active Substance: CLADRIBINE
     Indication: CHRONIC LYMPHOCYTIC LEUKAEMIA
     Dosage: UNK
  6. FLUDARABINE [Concomitant]
     Active Substance: FLUDARABINE PHOSPHATE
     Dosage: UNK UNK,UNK
  7. RITUXIMAB. [Suspect]
     Active Substance: RITUXIMAB
     Indication: CHRONIC LYMPHOCYTIC LEUKAEMIA
     Dosage: UNK
  8. OFATUMUMAB [Suspect]
     Active Substance: OFATUMUMAB
     Indication: CHRONIC LYMPHOCYTIC LEUKAEMIA
     Dosage: UNK
  9. METHYLPREDNISOLONE. [Suspect]
     Active Substance: METHYLPREDNISOLONE
     Dosage: HIGH DOSE
  10. ALEMTUZUMAB [Suspect]
     Active Substance: ALEMTUZUMAB
     Indication: CHRONIC LYMPHOCYTIC LEUKAEMIA
     Dosage: UNK
  11. PREDNISOLONE. [Suspect]
     Active Substance: PREDNISOLONE
     Dosage: UNK
  12. DEXAMETHASONE. [Suspect]
     Active Substance: DEXAMETHASONE
     Dosage: UNK

REACTIONS (20)
  - Staphylococcal sepsis [Fatal]
  - Disease progression [Fatal]
  - Hypercalcaemia [Fatal]
  - Hepatic failure [Fatal]
  - General physical health deterioration [Fatal]
  - Respiratory failure [Fatal]
  - Phlebitis [Fatal]
  - Hyperleukocytosis [Fatal]
  - Respiratory tract infection fungal [Fatal]
  - Drug resistance [Fatal]
  - Multiple organ dysfunction syndrome [Fatal]
  - Herpes zoster [Fatal]
  - Anaemia [Fatal]
  - Liver injury [Fatal]
  - Lower respiratory tract infection [Fatal]
  - Thrombocytopenia [Fatal]
  - Cytomegalovirus infection [Fatal]
  - Lymphocytosis [Fatal]
  - Pyrexia [Fatal]
  - Renal failure [Fatal]
